FAERS Safety Report 17654866 (Version 1)
Quarter: 2020Q2

REPORT INFORMATION
  Report Type: Spontaneous
  Country: JP (occurrence: JP)
  Receive Date: 20200410
  Receipt Date: 20200410
  Transmission Date: 20200713
  Serious: Yes (Hospitalization)
  Sender: FDA-Public Use
  Company Number: JP-PFIZER INC-2020144959

PATIENT
  Age: 58 Year
  Sex: Female
  Weight: 46.3 kg

DRUGS (11)
  1. THYRADIN [Concomitant]
     Active Substance: LEVOTHYROXINE
     Dosage: UNK
  2. MORPHES [Concomitant]
     Active Substance: MORPHINE SULFATE
     Dosage: UNK
  3. MUCODYNE [Concomitant]
     Active Substance: CARBOCYSTEINE
     Dosage: UNK
  4. CLAFORAN [Concomitant]
     Active Substance: CEFOTAXIME SODIUM
     Dosage: UNK
  5. CEFTRIAXONE SODIUM. [Suspect]
     Active Substance: CEFTRIAXONE SODIUM
     Indication: BRAIN ABSCESS
     Dosage: UNK
     Dates: start: 20190708
  6. ENSURE H [Concomitant]
     Active Substance: CARBOHYDRATES\FATTY ACIDS\MINERALS\PROTEIN\VITAMINS
     Dosage: UNK
  7. URSODEOXYCHOLIC ACID [Concomitant]
     Active Substance: URSODIOL
     Dosage: UNK
  8. ENEVO [Concomitant]
     Dosage: UNK
  9. ANAEMETRO [Suspect]
     Active Substance: METRONIDAZOLE
     Indication: BRAIN ABSCESS
     Dosage: 500 MG, 4X/DAY
     Route: 041
     Dates: start: 20190708, end: 20190723
  10. HOCHUEKKITO [ANGELICA ACUTILOBA ROOT;ASTRAGALUS SPP. ROOT;ATRACTYLODES [Concomitant]
     Active Substance: HERBALS
     Dosage: UNK
  11. FLAGYL [Suspect]
     Active Substance: METRONIDAZOLE\METRONIDAZOLE HYDROCHLORIDE
     Indication: BRAIN ABSCESS
     Dosage: 500 MG, 4X/DAY
     Route: 048
     Dates: start: 20190724, end: 20190819

REACTIONS (2)
  - Cholelithiasis [Unknown]
  - Toxic encephalopathy [Recovering/Resolving]

NARRATIVE: CASE EVENT DATE: 20190724
